FAERS Safety Report 6619843-9 (Version None)
Quarter: 2010Q1

REPORT INFORMATION
  Report Type: 
  Country: None (occurrence: None)
  Receive Date: 20100309
  Receipt Date: 20100226
  Transmission Date: 20100710
  Serious: Yes (Other)
  Sender: FDA-Public Use
  Company Number: GB-WYE-G05651310

PATIENT
  Age: 50 Year
  Sex: Male

DRUGS (4)
  1. EFFEXOR XR [Suspect]
     Route: 048
  2. LISINOPRIL [Concomitant]
     Dosage: UNKNOWN
  3. FELODIPINE [Concomitant]
     Dosage: UNKNOWN
  4. DOXAZOSIN MESYLATE [Concomitant]
     Dosage: UNKNOWN

REACTIONS (1)
  - PERIPHERAL SENSORIMOTOR NEUROPATHY [None]
